FAERS Safety Report 17887932 (Version 1)
Quarter: 2020Q2

REPORT INFORMATION
  Report Type: Spontaneous
  Country: CA (occurrence: CA)
  Receive Date: 20200612
  Receipt Date: 20200612
  Transmission Date: 20200714
  Serious: Yes (Other)
  Sender: FDA-Public Use
  Company Number: CA-TEVA-2020-CA-1247193

PATIENT
  Age: 49 Year
  Sex: Female

DRUGS (12)
  1. REACTINE [CETIRIZINE HYDROCHLORIDE] [Concomitant]
     Active Substance: CETIRIZINE HYDROCHLORIDE
     Indication: PRODUCT USED FOR UNKNOWN INDICATION
     Route: 048
  2. CYMBALTA [Suspect]
     Active Substance: DULOXETINE HYDROCHLORIDE
     Indication: ARTHRALGIA
     Route: 048
  3. ALEMTUZUMAB [Suspect]
     Active Substance: ALEMTUZUMAB
     Dosage: 12 MILLIGRAM DAILY;
     Route: 042
  4. METHYLPREDNISOLONE. [Suspect]
     Active Substance: METHYLPREDNISOLONE
     Indication: PRODUCT USED FOR UNKNOWN INDICATION
     Route: 042
  5. ACYCLOVIR. [Suspect]
     Active Substance: ACYCLOVIR
     Indication: PREMEDICATION
     Dosage: 400 MILLIGRAM DAILY;
     Route: 048
  6. ALEMTUZUMAB [Suspect]
     Active Substance: ALEMTUZUMAB
     Indication: MULTIPLE SCLEROSIS
     Dosage: 12 MILLIGRAM DAILY;
     Route: 042
  7. ACETAMINOPHEN. [Concomitant]
     Active Substance: ACETAMINOPHEN
     Indication: PREMEDICATION
     Route: 048
  8. SYNTHROID [Concomitant]
     Active Substance: LEVOTHYROXINE SODIUM
     Indication: PRODUCT USED FOR UNKNOWN INDICATION
     Route: 065
  9. METHYLPREDNISOLONE. [Suspect]
     Active Substance: METHYLPREDNISOLONE
     Route: 042
  10. GRAVOL [Concomitant]
     Active Substance: DIMENHYDRINATE
     Indication: PRODUCT USED FOR UNKNOWN INDICATION
     Route: 065
  11. RANITIDINE. [Concomitant]
     Active Substance: RANITIDINE
     Indication: PRODUCT USED FOR UNKNOWN INDICATION
     Route: 048
  12. BENADRYL[DIPHENHYDRAMINE HYDROCHLORIDE] [Concomitant]
     Indication: PRODUCT USED FOR UNKNOWN INDICATION
     Route: 065

REACTIONS (47)
  - Aphonia [Unknown]
  - Bacterial test positive [Unknown]
  - Balance disorder [Unknown]
  - Crystal urine present [Unknown]
  - Diplopia [Unknown]
  - Drug ineffective [Unknown]
  - Headache [Unknown]
  - Blood urine present [Unknown]
  - Body temperature increased [Unknown]
  - Lymphocyte count decreased [Unknown]
  - Rash [Unknown]
  - Vision blurred [Unknown]
  - Arthralgia [Unknown]
  - Dysstasia [Unknown]
  - Off label use [Unknown]
  - Peripheral coldness [Unknown]
  - Red blood cells urine positive [Unknown]
  - Weight increased [Unknown]
  - White blood cells urine positive [Unknown]
  - Culture urine positive [Unknown]
  - Immunodeficiency [Unknown]
  - Flushing [Unknown]
  - Malaise [Unknown]
  - Muscular weakness [Unknown]
  - Urinary sediment present [Unknown]
  - Dyspnoea [Unknown]
  - Haemoglobin urine present [Unknown]
  - Heart rate decreased [Unknown]
  - Hypoaesthesia [Unknown]
  - Influenza [Unknown]
  - Mean cell haemoglobin concentration increased [Unknown]
  - Platelet count decreased [Unknown]
  - Sinusitis [Unknown]
  - Vertigo [Unknown]
  - Abdominal pain upper [Unknown]
  - Blood pressure increased [Unknown]
  - Central nervous system lesion [Unknown]
  - Fatigue [Unknown]
  - Insomnia [Unknown]
  - Multiple sclerosis relapse [Unknown]
  - Nausea [Unknown]
  - Red cell distribution width decreased [Unknown]
  - Urine abnormality [Unknown]
  - Cough [Unknown]
  - Grip strength decreased [Unknown]
  - Sinus bradycardia [Unknown]
  - Urine analysis abnormal [Unknown]
